FAERS Safety Report 6866439-X (Version None)
Quarter: 2010Q3

REPORT INFORMATION
  Report Type: 
  Country: None (occurrence: None)
  Receive Date: 20100722
  Receipt Date: 20100719
  Transmission Date: 20110219
  Serious: Yes (Hospitalization)
  Sender: FDA-Public Use
  Company Number: FR-BRISTOL-MYERS SQUIBB COMPANY-15199946

PATIENT
  Age: 88 Year
  Sex: Female

DRUGS (7)
  1. PRAVIGARD PAC (COPACKAGED) [Suspect]
     Route: 048
  2. MOXIFLOXACIN [Suspect]
     Route: 048
     Dates: start: 20071015
  3. PARACETAMOL [Concomitant]
  4. BISOPROLOL FUMARATE [Concomitant]
  5. CERIS [Concomitant]
  6. ECONAZOLE NITRATE [Concomitant]
  7. ZOLPIDEM [Concomitant]

REACTIONS (3)
  - ANAEMIA [None]
  - FALL [None]
  - HAEMATOMA [None]
